FAERS Safety Report 15645704 (Version 1)
Quarter: 2018Q4

REPORT INFORMATION
  Report Type: Spontaneous
  Country: US (occurrence: US)
  Receive Date: 20181121
  Receipt Date: 20181121
  Transmission Date: 20190205
  Serious: No
  Sender: FDA-Public Use
  Company Number: US-MAYNE PHARMA-2018MYN001420

PATIENT

DRUGS (2)
  1. SORILUX [Suspect]
     Active Substance: CALCIPOTRIENE
     Indication: SKIN DISORDER
     Dosage: UNK, BID
     Route: 061
     Dates: start: 20180919, end: 20180920
  2. KETOCONAZOLE. [Suspect]
     Active Substance: KETOCONAZOLE
     Indication: SKIN DISORDER
     Dosage: AS DIRECTED
     Route: 061
     Dates: start: 201808, end: 2018

REACTIONS (4)
  - Application site discharge [Not Recovered/Not Resolved]
  - Application site erythema [Not Recovered/Not Resolved]
  - Condition aggravated [Not Recovered/Not Resolved]
  - Application site pain [Not Recovered/Not Resolved]

NARRATIVE: CASE EVENT DATE: 2018
